FAERS Safety Report 17566186 (Version 1)
Quarter: 2020Q1

REPORT INFORMATION
  Report Type: Spontaneous
  Country: US (occurrence: US)
  Receive Date: 20200315
  Receipt Date: 20200315
  Transmission Date: 20200409
  Serious: Yes (Death)
  Sender: FDA-Public Use
  Company Number: None

PATIENT
  Age: 58 Year
  Sex: Male

DRUGS (1)
  1. RETACRIT [Suspect]
     Active Substance: EPOETIN ALFA-EPBX
     Indication: SQUAMOUS CELL CARCINOMA OF SKIN
     Dosage: ?          OTHER DOSE:4000 UNIT;OTHER FREQUENCY:EVERY 7 DAYS;?
     Route: 058
     Dates: start: 2019

REACTIONS (1)
  - Death [None]

NARRATIVE: CASE EVENT DATE: 20200128
